FAERS Safety Report 23273831 (Version 1)
Quarter: 2023Q4

REPORT INFORMATION
  Report Type: Spontaneous
  Country: DK (occurrence: DK)
  Receive Date: 20231207
  Receipt Date: 20231207
  Transmission Date: 20240110
  Serious: Yes (Hospitalization)
  Sender: FDA-Public Use
  Company Number: None

PATIENT
  Age: 33 Year
  Sex: Male

DRUGS (5)
  1. TYSABRI [Suspect]
     Active Substance: NATALIZUMAB
     Indication: Multiple sclerosis
     Dosage: STRENGTH: 300 MG
     Route: 050
     Dates: start: 2011
  2. DISULFIRAM [Concomitant]
     Active Substance: DISULFIRAM
     Indication: Alcoholism
     Route: 050
     Dates: start: 20220209
  3. TOLTERODIN ^STADA^ [Concomitant]
     Indication: Pollakiuria
     Route: 050
     Dates: start: 20230331
  4. THIAMINE [Concomitant]
     Active Substance: THIAMINE
     Indication: Vitamin supplementation
     Route: 050
     Dates: start: 20220912
  5. LAMOTRIGINE [Concomitant]
     Active Substance: LAMOTRIGINE
     Indication: Bipolar disorder
     Route: 050
     Dates: start: 20221212

REACTIONS (1)
  - Anaemia [Unknown]

NARRATIVE: CASE EVENT DATE: 20231003
